FAERS Safety Report 20151570 (Version 2)
Quarter: 2022Q1

REPORT INFORMATION
  Report Type: Spontaneous
  Country: US (occurrence: US)
  Receive Date: 20211206
  Receipt Date: 20220331
  Transmission Date: 20220423
  Serious: No
  Sender: FDA-Public Use
  Company Number: US-BRISTOL-MYERS SQUIBB COMPANY-BMS-2021-131645

PATIENT
  Sex: Female

DRUGS (1)
  1. ORENCIA [Suspect]
     Active Substance: ABATACEPT
     Indication: Rheumatoid arthritis
     Dosage: LOT NUMBER: ACA7395, EXPIRY DATE: 31-AUG-2023
     Route: 058
     Dates: start: 20210712

REACTIONS (2)
  - Joint swelling [Unknown]
  - Arthralgia [Unknown]
